FAERS Safety Report 13092583 (Version 1)
Quarter: 2017Q1

REPORT INFORMATION
  Report Type: Spontaneous
  Country: US (occurrence: US)
  Receive Date: 20170105
  Receipt Date: 20170105
  Transmission Date: 20170428
  Serious: Yes (Life-Threatening, Hospitalization, Other)
  Sender: FDA-Public Use
  Company Number: None

PATIENT
  Age: 52 Year
  Sex: Male
  Weight: 103.5 kg

DRUGS (2)
  1. ALLOPURINOL. [Concomitant]
     Active Substance: ALLOPURINOL
  2. SUPREP BOWEL PREP [Suspect]
     Active Substance: MAGNESIUM SULFATE\POTASSIUM SULFATE\SODIUM SULFATE
     Indication: COLONOSCOPY
     Route: 048
     Dates: start: 20161218, end: 20161218

REACTIONS (3)
  - Blood sodium decreased [None]
  - Heart rate increased [None]
  - Blood pressure increased [None]

NARRATIVE: CASE EVENT DATE: 20161218
